FAERS Safety Report 9140917 (Version 1)
Quarter: 2013Q1

REPORT INFORMATION
  Report Type: Spontaneous
  Country: TR (occurrence: TR)
  Receive Date: 20130305
  Receipt Date: 20130305
  Transmission Date: 20140127
  Serious: Yes (Other)
  Sender: FDA-Public Use
  Company Number: TR-PFIZER INC-2013072167

PATIENT
  Age: 55 Year
  Sex: Female

DRUGS (1)
  1. ATGAM [Suspect]

REACTIONS (3)
  - Anaphylactic reaction [Unknown]
  - Cerebral haemorrhage [Unknown]
  - Drug intolerance [Unknown]
